FAERS Safety Report 12186530 (Version 1)
Quarter: 2016Q1

REPORT INFORMATION
  Report Type: Report from Study
  Country: DE (occurrence: DE)
  Receive Date: 20160317
  Receipt Date: 20160317
  Transmission Date: 20160526
  Serious: Yes (Hospitalization, Other)
  Sender: FDA-Public Use
  Company Number: DE-ROCHE-1726549

PATIENT
  Sex: Male

DRUGS (6)
  1. ROACTEMRA [Suspect]
     Active Substance: TOCILIZUMAB
     Indication: RHEUMATOID ARTHRITIS
     Route: 058
     Dates: start: 20140602, end: 20160209
  2. ASPIRIN. [Concomitant]
     Active Substance: ASPIRIN
     Route: 065
  3. SIMVAHEXAL [Concomitant]
     Active Substance: SIMVASTATIN
  4. INSULIN [Concomitant]
     Active Substance: INSULIN NOS
  5. LISINOPRIL. [Concomitant]
     Active Substance: LISINOPRIL
  6. ALLOPURINOL. [Concomitant]
     Active Substance: ALLOPURINOL
     Route: 065

REACTIONS (4)
  - Benign neoplasm [Unknown]
  - Thyroid mass [Unknown]
  - Arthralgia [Unknown]
  - Joint swelling [Unknown]
